FAERS Safety Report 6659483-9 (Version None)
Quarter: 2010Q1

REPORT INFORMATION
  Report Type: 
  Country: None (occurrence: None)
  Receive Date: 20100330
  Receipt Date: 20100322
  Transmission Date: 20100710
  Serious: Yes (Death, Hospitalization)
  Sender: FDA-Public Use
  Company Number: US-BAXTER-2010BH007659

PATIENT
  Sex: Female

DRUGS (6)
  1. DIANEAL [Suspect]
     Indication: PERITONEAL DIALYSIS
     Route: 033
     Dates: start: 20080101, end: 20100115
  2. DIANEAL [Suspect]
     Route: 033
     Dates: start: 20080101, end: 20100115
  3. DIANEAL [Suspect]
     Indication: PERITONEAL DIALYSIS
     Route: 033
     Dates: start: 20080101, end: 20100115
  4. DIANEAL [Suspect]
     Route: 033
     Dates: start: 20080101, end: 20100115
  5. EXTRANEAL [Suspect]
     Indication: PERITONEAL DIALYSIS
     Route: 033
     Dates: start: 20080101, end: 20100115
  6. EXTRANEAL [Suspect]
     Route: 033
     Dates: start: 20080101, end: 20100115

REACTIONS (6)
  - ABDOMINAL PAIN [None]
  - ADVERSE EVENT [None]
  - DIARRHOEA [None]
  - FUNGAL INFECTION [None]
  - GASTROINTESTINAL INFLAMMATION [None]
  - HYPOKALAEMIA [None]
